FAERS Safety Report 10750541 (Version 1)
Quarter: 2015Q1

REPORT INFORMATION
  Report Type: Spontaneous
  Country: US (occurrence: US)
  Receive Date: 20150130
  Receipt Date: 20150130
  Transmission Date: 20150721
  Serious: Yes (Life-Threatening, Other)
  Sender: FDA-Public Use
  Company Number: US-ROCHE-1524315

PATIENT
  Age: 56 Year
  Sex: Female

DRUGS (5)
  1. ZELNORM [Concomitant]
     Active Substance: TEGASEROD MALEATE
  2. KLONOPIN [Suspect]
     Active Substance: CLONAZEPAM
     Indication: MUSCLE RELAXANT THERAPY
     Dosage: DOUBLE DOSE
     Route: 048
     Dates: start: 20141202, end: 20141202
  3. HYOSCINE HYDROBROMIDE [Suspect]
     Active Substance: SCOPOLAMINE
     Indication: IMPAIRED GASTRIC EMPTYING
     Route: 062
     Dates: start: 201409
  4. PHENERGAN [Suspect]
     Active Substance: PROMETHAZINE HYDROCHLORIDE
     Indication: VOMITING
     Route: 048
     Dates: start: 20141115
  5. PHENERGAN [Suspect]
     Active Substance: PROMETHAZINE HYDROCHLORIDE
     Dosage: DOUBLE DOSE
     Route: 048
     Dates: start: 20141202, end: 20141202

REACTIONS (11)
  - Drug withdrawal syndrome [Unknown]
  - Skin abrasion [Not Recovered/Not Resolved]
  - Rash generalised [Not Recovered/Not Resolved]
  - Dysuria [Not Recovered/Not Resolved]
  - Somnolence [Unknown]
  - Tremor [Unknown]
  - Feeling abnormal [Unknown]
  - Hypersensitivity [Not Recovered/Not Resolved]
  - Vomiting [Recovered/Resolved]
  - Gait disturbance [Unknown]
  - Dry mouth [Not Recovered/Not Resolved]
